FAERS Safety Report 22627330 (Version 2)
Quarter: 2024Q1

REPORT INFORMATION
  Report Type: Spontaneous
  Country: US (occurrence: US)
  Receive Date: 20230622
  Receipt Date: 20240322
  Transmission Date: 20240409
  Serious: No
  Sender: FDA-Public Use
  Company Number: US-ASCENDIS PHARMA-2023US002126

PATIENT

DRUGS (2)
  1. SKYTROFA [Suspect]
     Active Substance: LONAPEGSOMATROPIN-TCGD
     Indication: Short stature
     Dosage: 11 MILLIGRAM, WEEKLY
     Route: 058
     Dates: start: 202301
  2. SKYTROFA [Suspect]
     Active Substance: LONAPEGSOMATROPIN-TCGD
     Indication: Hypopituitarism

REACTIONS (3)
  - Liquid product physical issue [Unknown]
  - Product dose omission issue [Unknown]
  - Product appearance confusion [Unknown]

NARRATIVE: CASE EVENT DATE: 20230318
